FAERS Safety Report 7722683-0 (Version None)
Quarter: 2011Q3

REPORT INFORMATION
  Report Type: 
  Country: None (occurrence: None)
  Receive Date: 20110831
  Receipt Date: 20110822
  Transmission Date: 20111222
  Serious: Yes (Hospitalization)
  Sender: FDA-Public Use
  Company Number: US-ASTRAZENECA-2010SE46851

PATIENT
  Age: 53 Year
  Sex: Female
  Weight: 90.7 kg

DRUGS (41)
  1. SEROQUEL XR [Suspect]
     Indication: DEPRESSION
     Route: 048
     Dates: start: 20080801
  2. SEROQUEL XR [Suspect]
     Route: 048
  3. PROZAC [Concomitant]
     Indication: DEPRESSION
     Route: 048
     Dates: start: 20010101
  4. DOXYCYCLINE [Concomitant]
     Indication: ANTIBIOTIC THERAPY
     Dosage: 100 MG, TWO TIMES A DAY
  5. VITAMIN D [Concomitant]
  6. TRAMADOL HCL [Concomitant]
  7. NEXIUM [Suspect]
     Indication: GASTROOESOPHAGEAL REFLUX DISEASE
     Dosage: 40 MG, TWO TIMES A DAY
     Route: 048
     Dates: start: 20100101
  8. CRESTOR [Suspect]
     Route: 048
  9. ZOFRAN [Concomitant]
     Indication: NAUSEA
  10. DONNATAL [Concomitant]
     Indication: IRRITABLE BOWEL SYNDROME
     Dosage: 16.2 MG THREE TIMES A DAY
  11. CYMBALTA [Concomitant]
     Indication: MIGRAINE
     Route: 048
     Dates: start: 20110801
  12. NEXIUM [Suspect]
     Route: 048
  13. TOPROL-XL [Suspect]
     Indication: HYPERTENSION
     Dosage: 100 MG, TWO TIMES A DAY
     Route: 048
     Dates: start: 20080101
  14. ASPIRIN [Concomitant]
     Indication: CARDIAC DISORDER
  15. DECADRON [Concomitant]
  16. ALLEGRA [Concomitant]
     Indication: SEASONAL ALLERGY
     Route: 048
     Dates: start: 20100101
  17. EPINEPHRINE [Concomitant]
     Indication: MOTION SICKNESS
     Route: 048
  18. NEXIUM [Suspect]
     Indication: DYSPEPSIA
     Dosage: 40 MG, TWO TIMES A DAY
     Route: 048
     Dates: start: 20100101
  19. LISINOPRIL [Suspect]
     Indication: BLOOD PRESSURE
     Route: 048
  20. SEROQUEL XR [Suspect]
     Route: 048
  21. LASIX [Concomitant]
     Route: 048
  22. METHYLDOPA [Concomitant]
     Indication: COUGH
     Dosage: 1-2 TSP Q4-6H
  23. SEROQUEL XR [Suspect]
     Indication: SLEEP DISORDER
     Route: 048
     Dates: start: 20080801
  24. KLONOPIN [Concomitant]
     Indication: DEPRESSION
     Dosage: 1 MG, THREE TIMES A DAY
     Route: 048
     Dates: start: 19910101
  25. SEROQUEL XR [Suspect]
     Indication: NERVOUSNESS
     Route: 048
     Dates: start: 20080801
  26. LASIX [Concomitant]
     Route: 048
     Dates: start: 20060101
  27. KLONOPIN [Concomitant]
     Indication: ANXIETY
     Dosage: 1 MG, THREE TIMES A DAY
     Route: 048
     Dates: start: 19910101
  28. OXYCODONE HCL [Concomitant]
  29. EMLODAPINE [Concomitant]
     Indication: BLOOD PRESSURE
  30. MIRAPEX [Concomitant]
     Indication: RESTLESS LEGS SYNDROME
     Route: 048
     Dates: start: 20090101
  31. TRAZODONE HCL [Concomitant]
     Indication: NERVOUSNESS
     Route: 048
     Dates: start: 20110801
  32. PHENOBARBITAL TAB [Concomitant]
     Indication: IRRITABLE BOWEL SYNDROME
     Dosage: 16.2 MG, THREE TIMES A DAY
     Route: 048
     Dates: start: 19910101
  33. SEROQUEL XR [Suspect]
     Route: 048
  34. NORMODYNE [Concomitant]
     Indication: BLOOD PRESSURE
     Dosage: 300 MG, THREE TIMES A DAY
  35. LIVATALOL [Concomitant]
     Indication: BLOOD CHOLESTEROL ABNORMAL
  36. NORVASC [Concomitant]
     Indication: BLOOD PRESSURE
     Route: 048
     Dates: start: 20100101
  37. NEXIUM [Suspect]
     Route: 048
  38. TOPROL-XL [Suspect]
     Route: 048
  39. CLONIDINE [Concomitant]
     Indication: BLOOD PRESSURE
     Dosage: 0.2 MG, TWO TIMES A DAY
     Route: 048
     Dates: start: 20100101
  40. ACETAMINOPHEN [Concomitant]
     Indication: HEADACHE
     Route: 048
     Dates: start: 19760101
  41. EPINEPHRINE [Concomitant]
     Indication: DIZZINESS
     Route: 048

REACTIONS (13)
  - CLUSTER HEADACHE [None]
  - DIARRHOEA [None]
  - NAUSEA [None]
  - WEIGHT DECREASED [None]
  - AMNESIA [None]
  - PAIN IN EXTREMITY [None]
  - DRUG DOSE OMISSION [None]
  - BRONCHITIS [None]
  - HYPERTENSION [None]
  - CHEST PAIN [None]
  - INSOMNIA [None]
  - OFF LABEL USE [None]
  - DRUG INEFFECTIVE [None]
